FAERS Safety Report 6698240-4 (Version None)
Quarter: 2010Q2

REPORT INFORMATION
  Report Type: 
  Country: None (occurrence: None)
  Receive Date: 20100427
  Receipt Date: 20100422
  Transmission Date: 20101027
  Serious: Yes (Other)
  Sender: FDA-Public Use
  Company Number: US-ASTRAZENECA-2010SE18160

PATIENT
  Age: 83 Year
  Sex: Male
  Weight: 90.7 kg

DRUGS (2)
  1. SYMBICORT [Suspect]
     Indication: CHRONIC OBSTRUCTIVE PULMONARY DISEASE
     Dosage: UNKNOWN DOSE TWO TIMES A DAY
     Route: 055
  2. SPIRIVA [Concomitant]

REACTIONS (2)
  - DRY MOUTH [None]
  - LUNG NEOPLASM MALIGNANT [None]
